FAERS Safety Report 7328817-4 (Version None)
Quarter: 2011Q1

REPORT INFORMATION
  Report Type: 
  Country: None (occurrence: None)
  Receive Date: 20110303
  Receipt Date: 20100401
  Transmission Date: 20110831
  Serious: Yes (Other)
  Sender: FDA-Public Use
  Company Number: US-BAYER-200939226NA

PATIENT
  Sex: Female
  Weight: 67.1 kg

DRUGS (23)
  1. MAGNEVIST [Suspect]
     Indication: NUCLEAR MAGNETIC RESONANCE IMAGING
     Dates: start: 19991203, end: 19991203
  2. PROHANCE [Suspect]
     Indication: NUCLEAR MAGNETIC RESONANCE IMAGING
  3. BETAMETHASONE [Concomitant]
  4. EPOETIN NOS [Concomitant]
  5. CONTRAST MEDIA [Concomitant]
     Route: 048
  6. TECHNETIUM TC-99M [Concomitant]
     Route: 042
  7. OPTIMARK [Suspect]
     Indication: NUCLEAR MAGNETIC RESONANCE IMAGING
  8. PEPCID [Concomitant]
  9. PHOSLO [Concomitant]
  10. FOSAMAX [Concomitant]
  11. NEPHROCAPS [Concomitant]
  12. OMNISCAN [Suspect]
     Indication: NUCLEAR MAGNETIC RESONANCE IMAGING
     Dates: start: 20041221, end: 20041221
  13. OMNISCAN [Suspect]
     Dosage: UNK
     Dates: start: 20020718, end: 20020718
  14. MULTIHANCE [Suspect]
     Indication: NUCLEAR MAGNETIC RESONANCE IMAGING
  15. PREDNISONE [Concomitant]
  16. OMNISCAN [Suspect]
     Indication: BILE DUCT OBSTRUCTION
     Dates: start: 20041223, end: 20041223
  17. OMNISCAN [Suspect]
     Indication: PANCREATIC MASS
     Dosage: UNK
     Dates: start: 20020715, end: 20020715
  18. OMNISCAN [Suspect]
     Indication: ANGIOGRAM
  19. CONTRAST MEDIA [Concomitant]
     Route: 042
  20. COUMADIN [Concomitant]
  21. MAGNEVIST [Suspect]
     Dosage: UNK
     Dates: start: 19990223, end: 19990223
  22. MAGNEVIST [Suspect]
     Dosage: UNK
     Dates: start: 19991224, end: 19991224
  23. PLAQUENIL [Concomitant]

REACTIONS (17)
  - NEPHROGENIC SYSTEMIC FIBROSIS [None]
  - JOINT CONTRACTURE [None]
  - SKIN TIGHTNESS [None]
  - OEDEMA PERIPHERAL [None]
  - SKIN DISORDER [None]
  - SKIN PLAQUE [None]
  - SKIN EXFOLIATION [None]
  - JOINT STIFFNESS [None]
  - PAIN [None]
  - GENERAL PHYSICAL HEALTH DETERIORATION [None]
  - SCAR [None]
  - SKIN INDURATION [None]
  - DRY SKIN [None]
  - SKIN FIBROSIS [None]
  - SKIN HYPERPIGMENTATION [None]
  - SKIN HYPERTROPHY [None]
  - DEFORMITY [None]
